FAERS Safety Report 7586884-7 (Version None)
Quarter: 2011Q3

REPORT INFORMATION
  Report Type: 
  Country: None (occurrence: None)
  Receive Date: 20110701
  Receipt Date: 20110627
  Transmission Date: 20111222
  Serious: Yes (Disabling, Other)
  Sender: FDA-Public Use
  Company Number: DK-BAYER-200917398GPV

PATIENT
  Age: 56 Year
  Sex: Female
  Weight: 50 kg

DRUGS (9)
  1. MAGNEVIST [Suspect]
     Indication: SCAN WITH CONTRAST
     Dosage: DAILY DOSE 10 ML
     Route: 014
     Dates: start: 20050511, end: 20050511
  2. OMNISCAN [Suspect]
     Indication: SCAN WITH CONTRAST
     Dosage: DAILY DOSE 40 ML
     Route: 042
     Dates: start: 20051208, end: 20051208
  3. ISRADIPINE [Concomitant]
     Indication: PRODUCT USED FOR UNKNOWN INDICATION
     Dosage: AS USED DOSE: UNK
     Route: 048
  4. PREDNISOLONE [Concomitant]
     Indication: PRODUCT USED FOR UNKNOWN INDICATION
     Dosage: AS USED DOSE: UNK
     Route: 065
  5. METOPROLOL SUCCINATE [Concomitant]
     Indication: PRODUCT USED FOR UNKNOWN INDICATION
     Dosage: AS USED DOSE: UNK
     Route: 065
  6. SANDIMMUNE [Concomitant]
     Indication: PRODUCT USED FOR UNKNOWN INDICATION
     Dosage: AS USED DOSE: UNK
     Route: 065
  7. AZATHIOPRINE SODIUM [Concomitant]
     Indication: PRODUCT USED FOR UNKNOWN INDICATION
     Dosage: AS USED DOSE: UNK
     Route: 065
  8. DIURAL [FUROSEMIDE] [Concomitant]
     Indication: PRODUCT USED FOR UNKNOWN INDICATION
     Dosage: AS USED DOSE: UNK
     Route: 048
  9. NEORECORMON [Concomitant]
     Indication: PRODUCT USED FOR UNKNOWN INDICATION
     Dosage: AS USED DOSE: UNK
     Route: 042

REACTIONS (16)
  - MUSCULOSKELETAL STIFFNESS [None]
  - PRURITUS [None]
  - SKIN TIGHTNESS [None]
  - NEPHROGENIC SYSTEMIC FIBROSIS [None]
  - SKIN HYPERTROPHY [None]
  - WALKING DISTANCE TEST ABNORMAL [None]
  - ATROPHY [None]
  - SKIN DISCOLOURATION [None]
  - DRY SKIN [None]
  - GAIT DISTURBANCE [None]
  - ALOPECIA [None]
  - MUSCULAR WEAKNESS [None]
  - MOVEMENT DISORDER [None]
  - DRY MOUTH [None]
  - ANXIETY [None]
  - INSOMNIA [None]
